FAERS Safety Report 8234489-7 (Version None)
Quarter: 2012Q1

REPORT INFORMATION
  Report Type: 
  Country: None (occurrence: None)
  Receive Date: 20120326
  Receipt Date: 20120319
  Transmission Date: 20120608
  Serious: Yes (Death, Hospitalization)
  Sender: FDA-Public Use
  Company Number: US-ELI_LILLY_AND_COMPANY-US201202005988

PATIENT
  Sex: Male
  Weight: 78.095 kg

DRUGS (7)
  1. ALIMTA [Suspect]
     Indication: NON-SMALL CELL LUNG CANCER
     Dosage: 500 MG/M2, EVERY 21 DAYS
     Dates: start: 20110609, end: 20111208
  2. FERROUS SULFATE TAB [Concomitant]
     Dosage: 325 MG, BID
  3. DEXAMETHASONE [Concomitant]
     Dosage: 4 MG, BID
     Dates: start: 20110602
  4. FOLIC ACID [Concomitant]
     Dosage: 1 MG, QD
     Route: 048
     Dates: start: 20110602
  5. LARIX [Concomitant]
     Dosage: 20 MG, QD
  6. AVASTIN [Concomitant]
     Dosage: 15 MG/KG, EVERY 21 DAYS
     Dates: start: 20110125, end: 20111208
  7. VITAMIN B-12 [Concomitant]
     Dosage: 1000 MCG, UNKNOWN
     Route: 030
     Dates: start: 20110602

REACTIONS (4)
  - RESPIRATORY ARREST [None]
  - SYNCOPE [None]
  - PANCYTOPENIA [None]
  - SICK SINUS SYNDROME [None]
